FAERS Safety Report 21714526 (Version 1)
Quarter: 2022Q4

REPORT INFORMATION
  Report Type: Spontaneous
  Country: US (occurrence: None)
  Receive Date: 20221209
  Receipt Date: 20221209
  Transmission Date: 20230112
  Serious: Yes (Hospitalization)
  Sender: FDA-Public Use
  Company Number: None

PATIENT
  Age: 76 Year
  Sex: Male
  Weight: 107.50 kg

DRUGS (1)
  1. EMPAGLIFLOZIN [Suspect]
     Active Substance: EMPAGLIFLOZIN
     Indication: Diabetes mellitus
     Dosage: FREQUENCY : DAILY;?
     Route: 048
     Dates: start: 20220328, end: 20220804

REACTIONS (15)
  - Fournier^s gangrene [None]
  - Acute kidney injury [None]
  - Sepsis [None]
  - Systemic inflammatory response syndrome [None]
  - COVID-19 [None]
  - Diarrhoea [None]
  - Perirectal abscess [None]
  - Culture wound positive [None]
  - Bacteroides infection [None]
  - Staphylococcal infection [None]
  - Dyspnoea [None]
  - Nasal congestion [None]
  - Tremor [None]
  - Cough [None]
  - Decreased appetite [None]

NARRATIVE: CASE EVENT DATE: 20220804
